FAERS Safety Report 4875988-5 (Version None)
Quarter: 2005Q4

REPORT INFORMATION
  Report Type: 
  Country: None (occurrence: None)
  Receive Date: 20051206
  Receipt Date: 20051020
  Transmission Date: 20060501
  Serious: No
  Sender: FDA-Public Use
  Company Number: IND-AE-05-SAN-065

PATIENT
  Age: 60 Year
  Sex: Male

DRUGS (9)
  1. SANCTURA [Suspect]
     Indication: HYPERTONIC BLADDER
     Dosage: 20 MG-BID-ORAL
     Route: 048
  2. DIOVAN TABLET [Concomitant]
  3. HYDROCHLOROTHIAZIDE TABLET [Concomitant]
  4. POTASSIUM TABLET [Concomitant]
  5. KLONOPIN [Concomitant]
  6. PRILOSEC [Concomitant]
  7. CO-ENZYME Q10 TABLET [Concomitant]
  8. CYMBALTA CAPSULE [Concomitant]
  9. TRAZODONE [Concomitant]

REACTIONS (1)
  - CHROMATURIA [None]
